FAERS Safety Report 25130002 (Version 3)
Quarter: 2025Q2

REPORT INFORMATION
  Report Type: Report from Study
  Country: KR (occurrence: KR)
  Receive Date: 20250327
  Receipt Date: 20250403
  Transmission Date: 20250717
  Serious: Yes (Death)
  Sender: MYLAN
  Company Number: KR-MYLANLABS-2025M1025591

PATIENT
  Age: 78 Year
  Sex: Female
  Weight: 50.6 kg

DRUGS (16)
  1. PRETOMANID [Suspect]
     Active Substance: PRETOMANID
     Indication: Pulmonary tuberculosis
     Dosage: 200 MILLIGRAM, QD
     Dates: start: 20250313
  2. BEDAQUILINE [Suspect]
     Active Substance: BEDAQUILINE
     Indication: Pulmonary tuberculosis
     Dosage: 400 MILLIGRAM, QD
     Dates: start: 20250313
  3. LINEZOLID [Suspect]
     Active Substance: LINEZOLID
     Indication: Pulmonary tuberculosis
     Dosage: 600 MILLIGRAM, QD
     Dates: start: 20250313
  4. LASIX [Concomitant]
     Active Substance: FUROSEMIDE
     Indication: Fluid imbalance
     Dates: start: 20250313, end: 20250316
  5. TELMISARTAN [Concomitant]
     Active Substance: TELMISARTAN
     Indication: Blood pressure increased
     Dosage: 80 MILLIGRAM, QD
     Dates: start: 20250313
  6. Godex [Concomitant]
     Indication: Hepatitis
     Dosage: 300 MILLIGRAM, BID
     Dates: start: 20250313
  7. Methysol [Concomitant]
     Indication: Inflammation
     Dosage: 30 MILLIGRAM, QD
     Dates: start: 20250309
  8. AMBROXOL HYDROCHLORIDE [Concomitant]
     Active Substance: AMBROXOL HYDROCHLORIDE
     Indication: Productive cough
     Dosage: 15 MILLIGRAM, BID
     Dates: start: 20250304
  9. Winuf [Concomitant]
     Indication: Nutritional supplementation
     Dosage: 1085 MILLILITER, QD (PER DAY)
     Dates: start: 20250304
  10. Tacenol [Concomitant]
     Indication: Pyrexia
     Dosage: 1300 MILLIGRAM, BID
     Dates: start: 20250310
  11. TRANSAMIN [Concomitant]
     Active Substance: TRANEXAMIC ACID
     Indication: Haemoptysis
     Dosage: 500 MILLIGRAM, BID
     Dates: start: 20250304
  12. Acetein [Concomitant]
     Indication: Productive cough
     Dosage: 200 MILLIGRAM, TID (200 MG PER CAPSULE, USED THREE TIMES DAILY)
     Dates: start: 20250313
  13. Pancron [Concomitant]
     Indication: Gastritis
     Dosage: UNK, TID
     Dates: start: 20250304
  14. HERBALS [Concomitant]
     Active Substance: HERBALS
     Indication: Gastritis
     Dosage: 1 DOSAGE FORM, TID (3 TABLETS PER DAY)
     Dates: start: 20250313
  15. URSODIOL [Concomitant]
     Active Substance: URSODIOL
     Indication: Hepatitis
     Dosage: 100 MILLIGRAM, TID
     Dates: start: 20250310
  16. GASTER [Concomitant]
     Active Substance: FAMOTIDINE
     Indication: Prophylaxis
     Dosage: 20 MILLIGRAM, BID
     Dates: start: 20250304

REACTIONS (2)
  - Haemoptysis [Fatal]
  - Acute respiratory failure [Fatal]

NARRATIVE: CASE EVENT DATE: 20250323
